FAERS Safety Report 14320535 (Version 1)
Quarter: 2017Q4

REPORT INFORMATION
  Report Type: Spontaneous
  Country: US (occurrence: US)
  Receive Date: 20171222
  Receipt Date: 20171222
  Transmission Date: 20180321
  Serious: Yes (Life-Threatening)
  Sender: FDA-Public Use
  Company Number: None

PATIENT
  Sex: Female

DRUGS (4)
  1. CEPHALEXIN. [Suspect]
     Active Substance: CEPHALEXIN
     Indication: LOCALISED INFECTION
     Dosage: ?          QUANTITY:1 TABLET(S);?
     Route: 048
  2. VITAMIN D [Concomitant]
     Active Substance: CHOLECALCIFEROL
  3. TOPAMAX [Concomitant]
     Active Substance: TOPIRAMATE
  4. PSYLLIUM [Concomitant]
     Active Substance: PLANTAGO SEED

REACTIONS (6)
  - Hyperhidrosis [None]
  - Abdominal pain [None]
  - Diarrhoea [None]
  - Ill-defined disorder [None]
  - Clostridium difficile infection [None]
  - Chills [None]

NARRATIVE: CASE EVENT DATE: 20171212
